FAERS Safety Report 15947228 (Version 1)
Quarter: 2019Q1

REPORT INFORMATION
  Report Type: Spontaneous
  Country: US (occurrence: US)
  Receive Date: 20190211
  Receipt Date: 20190211
  Transmission Date: 20190417
  Serious: No
  Sender: FDA-Public Use
  Company Number: US-PFIZER INC-2019053819

PATIENT
  Age: 72 Year
  Sex: Female
  Weight: 88.9 kg

DRUGS (1)
  1. LYRICA [Suspect]
     Active Substance: PREGABALIN
     Indication: NEUROPATHY PERIPHERAL
     Dosage: 75 MG, 2X/DAY
     Route: 048
     Dates: start: 20190103

REACTIONS (6)
  - Pain [Unknown]
  - Cough [Unknown]
  - Bronchitis [Unknown]
  - Sensitivity to weather change [Unknown]
  - Disease recurrence [Unknown]
  - Paranasal sinus hypersecretion [Unknown]

NARRATIVE: CASE EVENT DATE: 20190118
